FAERS Safety Report 7267362-1 (Version None)
Quarter: 2011Q1

REPORT INFORMATION
  Report Type: 
  Country: None (occurrence: None)
  Receive Date: 20110201
  Receipt Date: 20100707
  Transmission Date: 20110831
  Serious: No
  Sender: FDA-Public Use
  Company Number: A0865283A

PATIENT
  Age: 38 Year
  Sex: Male
  Weight: 73 kg

DRUGS (12)
  1. ZOSYN [Concomitant]
  2. POTASSIUM CHLORIDE [Concomitant]
  3. MORPHINE [Concomitant]
  4. ARIXTRA [Suspect]
     Dosage: 2.5MG PER DAY
     Route: 058
     Dates: start: 20100612, end: 20100615
  5. ACETAMINOPHEN [Concomitant]
  6. FAMOTIDINE [Concomitant]
  7. ASPIRIN [Concomitant]
  8. LORAZEPAM [Concomitant]
  9. LASIX [Concomitant]
  10. SODIUM BICARBONATE [Concomitant]
  11. NEXIUM [Concomitant]
  12. MANNITOL [Concomitant]

REACTIONS (1)
  - PLATELET COUNT DECREASED [None]
